FAERS Safety Report 25796318 (Version 1)
Quarter: 2025Q3

REPORT INFORMATION
  Report Type: Spontaneous
  Country: JP (occurrence: JP)
  Receive Date: 20250912
  Receipt Date: 20250912
  Transmission Date: 20251021
  Serious: Yes (Other)
  Sender: BAYER HEALTHCARE PHARMACEUTICALS INC.
  Company Number: JP-BAYER-2025A120614

PATIENT
  Sex: Male

DRUGS (1)
  1. NUBEQA [Suspect]
     Active Substance: DAROLUTAMIDE
     Route: 048

REACTIONS (6)
  - Pneumonitis [None]
  - Body temperature fluctuation [None]
  - Prostatitis [None]
  - Back pain [None]
  - Pyrexia [None]
  - Stress [None]

NARRATIVE: CASE EVENT DATE: 20250904
